FAERS Safety Report 22079884 (Version 1)
Quarter: 2023Q1

REPORT INFORMATION
  Report Type: Spontaneous
  Country: US (occurrence: None)
  Receive Date: 20230309
  Receipt Date: 20230309
  Transmission Date: 20230417
  Serious: Yes (Hospitalization)
  Sender: FDA-Public Use
  Company Number: None

PATIENT
  Age: 69 Year
  Sex: Female

DRUGS (1)
  1. GADOBUTROL [Suspect]
     Active Substance: GADOBUTROL
     Indication: Imaging procedure
     Dates: start: 20230308, end: 20230308

REACTIONS (3)
  - Chest pain [None]
  - Feeling hot [None]
  - Unresponsive to stimuli [None]

NARRATIVE: CASE EVENT DATE: 20230308
